FAERS Safety Report 7518936-1 (Version None)
Quarter: 2011Q2

REPORT INFORMATION
  Report Type: 
  Country: None (occurrence: None)
  Receive Date: 20110602
  Receipt Date: 20110525
  Transmission Date: 20111010
  Serious: Yes (Other)
  Sender: FDA-Public Use
  Company Number: US-PFIZER INC-2006087299

PATIENT
  Sex: Female
  Weight: 82 kg

DRUGS (7)
  1. MEDROXYPROGESTERONE ACETATE [Suspect]
     Indication: HORMONE REPLACEMENT THERAPY
  2. MEDROXYPROGESTERONE ACETATE [Suspect]
     Dosage: UNK
     Dates: start: 19850101, end: 20020101
  3. MEDROXYPROGESTERONE ACETATE [Suspect]
  4. PROVERA [Suspect]
     Indication: HORMONE REPLACEMENT THERAPY
     Dosage: UNK
     Route: 048
     Dates: start: 19850101, end: 20020101
  5. PROVERA [Suspect]
     Indication: MENOPAUSAL SYMPTOMS
  6. PREMARIN [Suspect]
     Dosage: UNK
     Route: 065
     Dates: start: 19850101, end: 20020101
  7. MEDROXYPROGESTERONE ACETATE [Suspect]
     Indication: MENOPAUSAL SYMPTOMS
     Dosage: UNK
     Route: 048
     Dates: start: 19850101, end: 20020101

REACTIONS (1)
  - BREAST CANCER FEMALE [None]
